FAERS Safety Report 18215063 (Version 6)
Quarter: 2020Q4

REPORT INFORMATION
  Report Type: Report from Study
  Country: US (occurrence: US)
  Receive Date: 20200831
  Receipt Date: 20201215
  Transmission Date: 20210113
  Serious: Yes (Hospitalization)
  Sender: FDA-Public Use
  Company Number: NVSC2020US239929

PATIENT
  Age: 64 Year
  Sex: Female

DRUGS (1)
  1. GILENYA [Suspect]
     Active Substance: FINGOLIMOD HYDROCHLORIDE
     Indication: RELAPSING-REMITTING MULTIPLE SCLEROSIS
     Dosage: 0.5 MG, QD
     Route: 048
     Dates: start: 20200828, end: 20201117

REACTIONS (6)
  - Fall [Unknown]
  - Alopecia [Unknown]
  - Wrist fracture [Recovered/Resolved with Sequelae]
  - Headache [Recovered/Resolved]
  - Urinary tract infection [Unknown]
  - Fracture [Unknown]

NARRATIVE: CASE EVENT DATE: 20200914
